FAERS Safety Report 4592381-3 (Version None)
Quarter: 2005Q1

REPORT INFORMATION
  Report Type: 
  Country: None (occurrence: None)
  Receive Date: 20050228
  Receipt Date: 20050107
  Transmission Date: 20050727
  Serious: No
  Sender: FDA-Public Use
  Company Number: US-BRISTOL-MYERS SQUIBB COMPANY-12818795

PATIENT
  Age: 26 Year
  Sex: Male
  Weight: 79 kg

DRUGS (6)
  1. ABILIFY [Suspect]
     Indication: SCHIZOAFFECTIVE DISORDER
     Route: 048
     Dates: start: 20040801
  2. RISPERDAL [Concomitant]
  3. COGENTIN [Concomitant]
  4. ZOLOFT [Concomitant]
  5. ATIVAN [Concomitant]
  6. DEPAKOTE [Concomitant]

REACTIONS (2)
  - ANGER [None]
  - WEIGHT INCREASED [None]
